FAERS Safety Report 16366706 (Version 1)
Quarter: 2019Q2

REPORT INFORMATION
  Report Type: Spontaneous
  Country: US (occurrence: US)
  Receive Date: 20190529
  Receipt Date: 20190529
  Transmission Date: 20190711
  Serious: No
  Sender: FDA-Public Use
  Company Number: US-KERYX BIOPHARMACEUTICALS INC.-2018US004431

PATIENT

DRUGS (3)
  1. AURYXIA [Suspect]
     Active Substance: TETRAFERRIC TRICITRATE DECAHYDRATE
     Indication: PRODUCT USED FOR UNKNOWN INDICATION
     Dosage: 1 G (1 TABLET), BID
     Route: 048
  2. UPTRAVI [Concomitant]
     Active Substance: SELEXIPAG
     Indication: PULMONARY HYPERTENSION
     Dosage: 400 MICRO-G, UNK
  3. AURYXIA [Suspect]
     Active Substance: TETRAFERRIC TRICITRATE DECAHYDRATE
     Dosage: 1 G (1 TABLET), QD
     Route: 048

REACTIONS (5)
  - Dyspnoea [Unknown]
  - Heart rate irregular [Unknown]
  - Abdominal pain [Unknown]
  - Swelling face [Unknown]
  - Eye swelling [Unknown]

NARRATIVE: CASE EVENT DATE: 201809
